FAERS Safety Report 13824619 (Version 1)
Quarter: 2017Q3

REPORT INFORMATION
  Report Type: Report from Study
  Country: None (occurrence: BR)
  Receive Date: 20170802
  Receipt Date: 20170802
  Transmission Date: 20171127
  Serious: Yes (Hospitalization, Other)
  Sender: FDA-Public Use
  Company Number: BR-ABBVIE-17K-020-2055135-00

PATIENT
  Age: 53 Year
  Sex: Female
  Weight: 60 kg

DRUGS (1)
  1. HUMIRA [Suspect]
     Active Substance: ADALIMUMAB
     Indication: RHEUMATOID ARTHRITIS
     Route: 058
     Dates: start: 20141229, end: 201702

REACTIONS (7)
  - Mucosa vesicle [Recovered/Resolved]
  - Kidney infection [Recovered/Resolved]
  - Hepatic infection [Recovered/Resolved]
  - Purulence [Recovered/Resolved]
  - Kidney enlargement [Recovered/Resolved]
  - Pulmonary oedema [Recovered/Resolved]
  - Urinary tract infection [Recovered/Resolved]

NARRATIVE: CASE EVENT DATE: 201612
